FAERS Safety Report 9475772 (Version 1)
Quarter: 2013Q3

REPORT INFORMATION
  Report Type: Spontaneous
  Country: US (occurrence: US)
  Receive Date: 20130826
  Receipt Date: 20130826
  Transmission Date: 20140515
  Serious: No
  Sender: FDA-Public Use
  Company Number: US-PFIZER INC-2013242302

PATIENT
  Age: 84 Year
  Sex: Male
  Weight: 86.17 kg

DRUGS (2)
  1. PIROXICAM [Suspect]
     Indication: ARTHRITIS
     Dosage: 20 MG, 1X/DAY
     Dates: start: 2012
  2. NORCO [Concomitant]
     Indication: PAIN
     Dosage: 7.5 MG, 1X/DAY AT NIGHT

REACTIONS (1)
  - Drug ineffective [Unknown]
